FAERS Safety Report 14818396 (Version 2)
Quarter: 2018Q2

REPORT INFORMATION
  Report Type: Spontaneous
  Country: CA (occurrence: CA)
  Receive Date: 20180427
  Receipt Date: 20180502
  Transmission Date: 20180711
  Serious: Yes (Other)
  Sender: FDA-Public Use
  Company Number: CA-ORION CORPORATION ORION PHARMA-TREX2018-1272

PATIENT
  Age: 58 Year
  Sex: Male

DRUGS (5)
  1. METHOTREXATE (TRADE NAME UNKNOWN) [Suspect]
     Active Substance: METHOTREXATE
     Indication: RHEUMATOID ARTHRITIS
     Route: 065
     Dates: start: 2015, end: 20170101
  2. PLAQUENIL [Concomitant]
     Active Substance: HYDROXYCHLOROQUINE SULFATE
     Route: 065
  3. RAMIPRIL. [Suspect]
     Active Substance: RAMIPRIL
     Route: 048
  4. ARAVA [Concomitant]
     Active Substance: LEFLUNOMIDE
     Route: 065
  5. CICLESONIDE [Suspect]
     Active Substance: CICLESONIDE
     Route: 065

REACTIONS (17)
  - Cardiac failure congestive [Unknown]
  - Dyspnoea [Unknown]
  - Blood test abnormal [Unknown]
  - Musculoskeletal discomfort [Unknown]
  - Blood iron decreased [Unknown]
  - Pain in extremity [Unknown]
  - Rheumatoid arthritis [Unknown]
  - Feeling abnormal [Not Recovered/Not Resolved]
  - Cough [Unknown]
  - Myocardial infarction [Unknown]
  - Joint lock [Unknown]
  - Arthralgia [Unknown]
  - Swollen tongue [Not Recovered/Not Resolved]
  - Haemoglobin decreased [Unknown]
  - Pain [Unknown]
  - Psoriasis [Unknown]
  - Nausea [Unknown]

NARRATIVE: CASE EVENT DATE: 2015
